FAERS Safety Report 21236893 (Version 1)
Quarter: 2022Q3

REPORT INFORMATION
  Report Type: Spontaneous
  Country: CA (occurrence: CA)
  Receive Date: 20220822
  Receipt Date: 20220822
  Transmission Date: 20221027
  Serious: Yes (Other)
  Sender: FDA-Public Use
  Company Number: None

PATIENT
  Age: 17 Year
  Sex: Male

DRUGS (11)
  1. ZONOVATE [Suspect]
     Active Substance: TUROCTOCOG ALFA
     Dosage: 2000 IU (FREQUENCY: 1 EVERY 3 WEEKS)
  2. ZONOVATE [Suspect]
     Active Substance: TUROCTOCOG ALFA
     Indication: Factor VIII deficiency
     Dosage: 2000 IU, BID
  3. ZONOVATE [Suspect]
     Active Substance: TUROCTOCOG ALFA
     Dosage: 2000 IU (FREQUENCY: EVERY 72 HOURS
     Route: 042
  4. ZONOVATE [Suspect]
     Active Substance: TUROCTOCOG ALFA
     Dosage: 2000 IU (FREQUENCY: 1 EVERY 3 WEEKS)
  5. ZONOVATE [Suspect]
     Active Substance: TUROCTOCOG ALFA
     Dosage: 2000 IU (FREQUENCY: 1 EVERY 2 DAYS)
  6. ZONOVATE [Suspect]
     Active Substance: TUROCTOCOG ALFA
     Dosage: 2000 IU (FREQUENCY: 1 EVERY 3 WEEKS)
  7. ZONOVATE [Suspect]
     Active Substance: TUROCTOCOG ALFA
     Dosage: 2000 IU (FREQUENCY: EVERY 72 HOURS)
  8. ZONOVATE [Suspect]
     Active Substance: TUROCTOCOG ALFA
     Dosage: 2000 IU, BIW
  9. ZONOVATE [Suspect]
     Active Substance: TUROCTOCOG ALFA
     Dosage: 2000 IU, BIW
  10. ZONOVATE [Suspect]
     Active Substance: TUROCTOCOG ALFA
     Dosage: UNK BIW
  11. CELEBREX [Concomitant]
     Active Substance: CELECOXIB
     Indication: Limb injury

REACTIONS (7)
  - Heart rate decreased [Not Recovered/Not Resolved]
  - Stress [Not Recovered/Not Resolved]
  - Poor venous access [Not Recovered/Not Resolved]
  - Haemarthrosis [Not Recovered/Not Resolved]
  - Drug half-life reduced [Not Recovered/Not Resolved]
  - Infusion site swelling [Not Recovered/Not Resolved]
  - Product administration error [Not Recovered/Not Resolved]
